FAERS Safety Report 11752578 (Version 3)
Quarter: 2016Q1

REPORT INFORMATION
  Report Type: Report from Study
  Country: IT (occurrence: IT)
  Receive Date: 20151119
  Receipt Date: 20160316
  Transmission Date: 20160525
  Serious: Yes (Other)
  Sender: FDA-Public Use
  Company Number: IT-ROCHE-1662712

PATIENT
  Age: 35 Year
  Sex: Female

DRUGS (1)
  1. VEMURAFENIB [Suspect]
     Active Substance: VEMURAFENIB
     Indication: MALIGNANT MELANOMA
     Route: 048
     Dates: start: 20150128, end: 20150420

REACTIONS (18)
  - Pancytopenia [Unknown]
  - Hallucination [Recovered/Resolved]
  - Diplopia [Unknown]
  - Gastritis [Unknown]
  - Deafness [Unknown]
  - Headache [Recovered/Resolved]
  - Back pain [Recovered/Resolved]
  - Parosmia [Unknown]
  - Anaemia [Recovered/Resolved]
  - Rash [Recovered/Resolved]
  - Hypokalaemia [Unknown]
  - Blood immunoglobulin G decreased [Unknown]
  - Pollakiuria [Recovered/Resolved]
  - Pyrexia [Recovered/Resolved]
  - Insomnia [Recovered/Resolved]
  - Diarrhoea [Unknown]
  - Mucosal inflammation [Unknown]
  - Dyspnoea [Recovered/Resolved]

NARRATIVE: CASE EVENT DATE: 20150330
